FAERS Safety Report 4500517-5 (Version None)
Quarter: 2004Q4

REPORT INFORMATION
  Report Type: 
  Country: None (occurrence: None)
  Receive Date: 20041110
  Receipt Date: 20041029
  Transmission Date: 20050328
  Serious: Yes (Death)
  Sender: FDA-Public Use
  Company Number: R301124-PAP-USA

PATIENT
  Age: 77 Year
  Sex: Female

DRUGS (1)
  1. ACIPHEX [Suspect]
     Dosage: 20 MG, ORAL
     Route: 048

REACTIONS (3)
  - HYPOXIA [None]
  - PNEUMONIA [None]
  - SEPSIS [None]
